FAERS Safety Report 10557899 (Version 1)
Quarter: 2014Q4

REPORT INFORMATION
  Report Type: Spontaneous
  Country: NO (occurrence: NO)
  Receive Date: 20141031
  Receipt Date: 20141031
  Transmission Date: 20150529
  Serious: Yes (Life-Threatening, Hospitalization)
  Sender: FDA-Public Use
  Company Number: NO-PFIZER INC-2014297802

PATIENT
  Sex: Male
  Weight: 3.34 kg

DRUGS (1)
  1. ZOLOFT [Suspect]
     Active Substance: SERTRALINE HYDROCHLORIDE
     Indication: DEPRESSED MOOD
     Dosage: UNK
     Route: 064

REACTIONS (3)
  - Persistent foetal circulation [Recovering/Resolving]
  - Maternal exposure during pregnancy [Recovering/Resolving]
  - Neonatal aspiration [Recovering/Resolving]

NARRATIVE: CASE EVENT DATE: 2014
